FAERS Safety Report 7228160-8 (Version None)
Quarter: 2011Q1

REPORT INFORMATION
  Report Type: 
  Country: None (occurrence: None)
  Receive Date: 20110106
  Receipt Date: 20101110
  Transmission Date: 20110831
  Serious: Yes (Other)
  Sender: FDA-Public Use
  Company Number: TRP_07492_2011

PATIENT
  Age: 60 Year
  Sex: Female

DRUGS (2)
  1. RIBAVIRIN [Suspect]
     Indication: HEPATITIS C
     Dosage: 800 MG, DAILY ORAL
     Route: 048
     Dates: start: 20070401
  2. PEG-INTRON [Suspect]
     Indication: HEPATITIS C
     Dosage: 180 UG 1X/WEEK SUBCUTANEOUS
     Route: 058
     Dates: start: 20070401

REACTIONS (10)
  - RASH [None]
  - DRUG TOLERANCE INCREASED [None]
  - ANAEMIA [None]
  - DEPRESSION [None]
  - SARCOIDOSIS [None]
  - SUBCUTANEOUS NODULE [None]
  - PAIN OF SKIN [None]
  - LYMPHOPENIA [None]
  - ANGIOTENSIN CONVERTING ENZYME INCREASED [None]
  - WEIGHT DECREASED [None]
